FAERS Safety Report 18065622 (Version 1)
Quarter: 2020Q3

REPORT INFORMATION
  Report Type: Spontaneous
  Country: US (occurrence: US)
  Receive Date: 20200724
  Receipt Date: 20200724
  Transmission Date: 20201103
  Serious: Yes (Other)
  Sender: FDA-Public Use
  Company Number: US-SHIRE-US202023400

PATIENT

DRUGS (1)
  1. GATTEX [Suspect]
     Active Substance: TEDUGLUTIDE\WATER
     Indication: PRODUCT USED FOR UNKNOWN INDICATION
     Route: 065

REACTIONS (8)
  - Weight increased [Unknown]
  - Gastrointestinal stoma complication [Unknown]
  - Cholecystitis acute [Unknown]
  - Micturition urgency [Unknown]
  - Small intestinal stenosis [Unknown]
  - Weight decreased [Unknown]
  - Increased appetite [Unknown]
  - Dehydration [Unknown]
